FAERS Safety Report 5427566-7 (Version None)
Quarter: 2007Q3

REPORT INFORMATION
  Report Type: 
  Country: None (occurrence: None)
  Receive Date: 20070828
  Receipt Date: 20070824
  Transmission Date: 20080115
  Serious: Yes (Life-Threatening, Hospitalization)
  Sender: FDA-Public Use
  Company Number: B0478070A

PATIENT
  Age: 83 Year
  Sex: Female
  Weight: 40 kg

DRUGS (10)
  1. ARIXTRA [Suspect]
     Indication: THROMBOSIS PROPHYLAXIS
     Dosage: 2.5MG PER DAY
     Route: 058
     Dates: start: 20070623, end: 20070629
  2. WARFARIN POTASSIUM [Suspect]
     Indication: MITRAL VALVE REPLACEMENT
     Route: 048
     Dates: end: 20070629
  3. FUROSEMIDE [Concomitant]
     Dosage: 40MG PER DAY
     Route: 048
  4. ALDACTONE [Concomitant]
     Dosage: 25MG PER DAY
     Route: 048
  5. ALLOPURINOL [Concomitant]
     Indication: GOUT
     Dosage: 100MG PER DAY
     Route: 048
  6. MEVARICH [Concomitant]
     Dosage: 5MG PER DAY
     Route: 048
  7. PURSENNID [Concomitant]
     Indication: CONSTIPATION
     Dosage: 12MG PER DAY
     Route: 048
  8. LENDORMIN [Concomitant]
     Indication: INSOMNIA
     Dosage: .25MG PER DAY
     Route: 048
  9. DILTIAZEM HCL [Concomitant]
     Dosage: 120MG PER DAY
     Route: 048
  10. UNKNOWN DRUG [Concomitant]
     Indication: BLOOD PRESSURE DECREASED
     Route: 042
     Dates: end: 20070623

REACTIONS (3)
  - DRUG INTERACTION [None]
  - HAEMOGLOBIN DECREASED [None]
  - POST PROCEDURAL HAEMATOMA [None]
